FAERS Safety Report 16446851 (Version 1)
Quarter: 2019Q2

REPORT INFORMATION
  Report Type: Spontaneous
  Country: JP (occurrence: JP)
  Receive Date: 20190618
  Receipt Date: 20190618
  Transmission Date: 20190711
  Serious: Yes (Other)
  Sender: FDA-Public Use
  Company Number: JP-PFIZER INC-2019251989

PATIENT
  Age: 7 Decade
  Sex: Male

DRUGS (2)
  1. INLYTA [Suspect]
     Active Substance: AXITINIB
     Indication: METASTATIC RENAL CELL CARCINOMA
     Dosage: 5 MG, UNK
     Route: 048
     Dates: start: 20190415
  2. INLYTA [Suspect]
     Active Substance: AXITINIB
     Dosage: 2 MG, UNK
     Route: 048
     Dates: end: 20190603

REACTIONS (2)
  - Decreased appetite [Unknown]
  - Renal impairment [Unknown]
